FAERS Safety Report 5702548-6 (Version None)
Quarter: 2008Q2

REPORT INFORMATION
  Report Type: 
  Country: None (occurrence: None)
  Receive Date: 20080411
  Receipt Date: 20070430
  Transmission Date: 20081010
  Serious: Yes (Other)
  Sender: FDA-Public Use
  Company Number: US-ASTRAZENECA-2007AC00803

PATIENT
  Age: 82 Year
  Sex: Female
  Weight: 56.4 kg

DRUGS (11)
  1. ATENOLOL [Suspect]
     Route: 048
  2. ATENOLOL [Suspect]
     Route: 048
  3. AMLODIPINE BESYLATE [Suspect]
  4. LANOXIN [Suspect]
  5. LANOXIN [Suspect]
  6. SIMVASTATIN [Concomitant]
  7. ASPIRIN [Concomitant]
  8. LISINOPRIL [Concomitant]
  9. MOXIFLOXACIN HCL [Concomitant]
  10. COUMADIN [Concomitant]
  11. ISOSORBIDE MONONITRATE [Concomitant]

REACTIONS (2)
  - DYSPNOEA EXERTIONAL [None]
  - FATIGUE [None]
